FAERS Safety Report 13335748 (Version 1)
Quarter: 2017Q1

REPORT INFORMATION
  Report Type: Report from Study
  Country: US (occurrence: US)
  Receive Date: 20170314
  Receipt Date: 20170314
  Transmission Date: 20170428
  Serious: Yes (Death, Hospitalization)
  Sender: FDA-Public Use
  Company Number: US-US WORLDMEDS, LLC-USW201703-000362

PATIENT
  Age: 79 Year
  Sex: Male

DRUGS (3)
  1. AMANTADINE [Concomitant]
     Active Substance: AMANTADINE
  2. SINEMET [Concomitant]
     Active Substance: CARBIDOPA\LEVODOPA
  3. APOKYN [Suspect]
     Active Substance: APOMORPHINE HYDROCHLORIDE
     Indication: PARKINSON^S DISEASE
     Route: 058
     Dates: start: 20161116

REACTIONS (2)
  - Cardiac arrest [Fatal]
  - Hernia repair [Unknown]

NARRATIVE: CASE EVENT DATE: 20170225
